FAERS Safety Report 7246938-1 (Version None)
Quarter: 2011Q1

REPORT INFORMATION
  Report Type: 
  Country: None (occurrence: None)
  Receive Date: 20110127
  Receipt Date: 20110124
  Transmission Date: 20110831
  Serious: Yes (Hospitalization)
  Sender: FDA-Public Use
  Company Number: BE-ABBOTT-10P-013-0685919-00

PATIENT
  Sex: Male

DRUGS (7)
  1. D-VITAL [Concomitant]
     Indication: PRODUCT USED FOR UNKNOWN INDICATION
  2. ELTHYRONE [Suspect]
  3. ASAFLOW [Concomitant]
     Indication: PRODUCT USED FOR UNKNOWN INDICATION
  4. NOVONORM [Concomitant]
     Indication: PRODUCT USED FOR UNKNOWN INDICATION
  5. ELTHYRONE [Suspect]
     Indication: HYPOTHYROIDISM
  6. INSULATARD [Concomitant]
     Indication: PRODUCT USED FOR UNKNOWN INDICATION
  7. COZAAR [Concomitant]
     Indication: PRODUCT USED FOR UNKNOWN INDICATION

REACTIONS (4)
  - AUTOIMMUNE DISORDER [None]
  - DRUG INEFFECTIVE [None]
  - DEMENTIA OF THE ALZHEIMER'S TYPE, WITH DELIRIUM [None]
  - HYPOTHYROIDISM [None]
